FAERS Safety Report 25727445 (Version 1)
Quarter: 2025Q3

REPORT INFORMATION
  Report Type: Spontaneous
  Country: EU (occurrence: EU)
  Receive Date: 20250826
  Receipt Date: 20250826
  Transmission Date: 20251020
  Serious: Yes (Disabling, Other)
  Sender: B. BRAUN MEDICAL INC.
  Company Number: None

PATIENT
  Age: 58 Year
  Sex: Male

DRUGS (3)
  1. BUPIVACAINE [Suspect]
     Active Substance: BUPIVACAINE
     Indication: Anaesthetic ophthalmic procedure
  2. LIDOCAINE [Suspect]
     Active Substance: LIDOCAINE
     Indication: Anaesthetic ophthalmic procedure
  3. HYALURONIDASE [Concomitant]
     Active Substance: HYALURONIDASE
     Indication: Anaesthetic ophthalmic procedure

REACTIONS (6)
  - Retinal artery occlusion [Unknown]
  - Open globe injury [Unknown]
  - Injury [Unknown]
  - Macular ischaemia [Unknown]
  - Vitreous haemorrhage [Recovered/Resolved]
  - Retinal haemorrhage [Recovered/Resolved]
